FAERS Safety Report 9213548 (Version 4)
Quarter: 2013Q4

REPORT INFORMATION
  Report Type: Spontaneous
  Country: GB (occurrence: GB)
  Receive Date: 20130405
  Receipt Date: 20131223
  Transmission Date: 20140711
  Serious: Yes (Hospitalization, Other)
  Sender: FDA-Public Use
  Company Number: GB-NOVOPROD-374378

PATIENT
  Age: 69 Year
  Sex: Male

DRUGS (6)
  1. NOVORAPID FLEXPEN [Suspect]
     Indication: TYPE 1 DIABETES MELLITUS
     Dosage: 4 TO 14 UNITS THREE TIMES A DAY
     Route: 065
  2. LEVEMIR [Concomitant]
     Indication: TYPE 1 DIABETES MELLITUS
     Dosage: UNK
     Route: 065
  3. ADALAT [Concomitant]
     Dosage: UNK
     Route: 065
  4. DOXAZOSIN [Concomitant]
     Dosage: UNK
     Route: 065
  5. RANITIDINE [Concomitant]
     Dosage: UNK
     Route: 065
  6. LISINOPRIL [Concomitant]
     Dosage: UNK
     Route: 065

REACTIONS (6)
  - Syncope [Unknown]
  - Cardiac disorder [Unknown]
  - Malaise [Unknown]
  - Hyperglycaemia [Recovered/Resolved]
  - Product quality issue [Recovered/Resolved]
  - Stent placement [Recovered/Resolved]
